FAERS Safety Report 5642167-3 (Version None)
Quarter: 2008Q1

REPORT INFORMATION
  Report Type: 
  Country: None (occurrence: None)
  Receive Date: 20080225
  Receipt Date: 20080215
  Transmission Date: 20080703
  Serious: Yes (Hospitalization)
  Sender: FDA-Public Use
  Company Number: 18416

PATIENT
  Age: 35 Year
  Sex: Female

DRUGS (2)
  1. EPIRUBICIN [Suspect]
     Indication: BREAST CANCER
     Dosage: 145 MG IV
     Route: 042
     Dates: start: 20071217, end: 20071217
  2. ENDOXAN. MFR: BAXTER [Suspect]
     Indication: BREAST CANCER
     Dosage: 970 MG IV
     Route: 042
     Dates: start: 20071217, end: 20071217

REACTIONS (4)
  - ASTHENIA [None]
  - GASTROINTESTINAL TOXICITY [None]
  - NAUSEA [None]
  - VOMITING [None]
